FAERS Safety Report 20175785 (Version 1)
Quarter: 2021Q4

REPORT INFORMATION
  Report Type: Spontaneous
  Country: US (occurrence: None)
  Receive Date: 20211211
  Receipt Date: 20211211
  Transmission Date: 20220303
  Serious: Yes (Hospitalization)
  Sender: FDA-Public Use
  Company Number: None

PATIENT
  Sex: Female
  Weight: 133 kg

DRUGS (3)
  1. CYCLOPHOSPHAMIDE [Suspect]
     Active Substance: CYCLOPHOSPHAMIDE
     Dates: end: 20210706
  2. DOXORUBICIN HYDROCHLORIDE [Suspect]
     Active Substance: DOXORUBICIN HYDROCHLORIDE
     Dates: end: 20210706
  3. TAXOL [Suspect]
     Active Substance: PACLITAXEL
     Dates: end: 20211109

REACTIONS (6)
  - Immunodeficiency [None]
  - Abscess [None]
  - Upper respiratory tract infection [None]
  - Neuropathy peripheral [None]
  - Exposure to SARS-CoV-2 [None]
  - Perirectal abscess [None]

NARRATIVE: CASE EVENT DATE: 20211126
